FAERS Safety Report 24800001 (Version 2)
Quarter: 2025Q1

REPORT INFORMATION
  Report Type: Spontaneous
  Country: GR (occurrence: GR)
  Receive Date: 20250102
  Receipt Date: 20250124
  Transmission Date: 20250409
  Serious: Yes (Other)
  Sender: TAKEDA
  Company Number: GR-TAKEDA-2024TUS130143

PATIENT
  Age: 76 Year
  Sex: Female

DRUGS (2)
  1. PRUCALOPRIDE SUCCINATE [Suspect]
     Active Substance: PRUCALOPRIDE SUCCINATE
     Indication: Impaired gastric emptying
  2. PRUCALOPRIDE SUCCINATE [Suspect]
     Active Substance: PRUCALOPRIDE SUCCINATE
     Indication: Gastrostomy

REACTIONS (4)
  - Critical illness [Unknown]
  - Gastroenteritis [Unknown]
  - Product supply issue [Unknown]
  - Product availability issue [Unknown]
